FAERS Safety Report 12165452 (Version 3)
Quarter: 2016Q2

REPORT INFORMATION
  Report Type: Spontaneous
  Country: US (occurrence: US)
  Receive Date: 20160309
  Receipt Date: 20160525
  Transmission Date: 20160815
  Serious: Yes (Hospitalization)
  Sender: FDA-Public Use
  Company Number: US-BAYER-2016-043919

PATIENT
  Age: 37 Year
  Sex: Female
  Weight: 95.24 kg

DRUGS (3)
  1. MIRENA [Suspect]
     Active Substance: LEVONORGESTREL
     Indication: CONTRACEPTION
     Dosage: 20 MCG/24HR, CONT
     Route: 015
     Dates: start: 20120301
  2. PERCOCET [Concomitant]
     Active Substance: ACETAMINOPHEN\OXYCODONE HYDROCHLORIDE
  3. CELEXA [Concomitant]
     Active Substance: CITALOPRAM HYDROBROMIDE

REACTIONS (8)
  - Embedded device [None]
  - Anxiety [None]
  - Device difficult to use [None]
  - Uterine perforation [None]
  - Menorrhagia [None]
  - Abdominal pain [None]
  - Medical device discomfort [None]
  - Depression [None]

NARRATIVE: CASE EVENT DATE: 20120301
